FAERS Safety Report 8159556-8 (Version None)
Quarter: 2012Q1

REPORT INFORMATION
  Report Type: 
  Country: None (occurrence: None)
  Receive Date: 20120223
  Receipt Date: 20120220
  Transmission Date: 20120608
  Serious: Yes (Hospitalization)
  Sender: FDA-Public Use
  Company Number: JP-BAYER-2011-006161

PATIENT
  Age: 61 Year
  Sex: Male
  Weight: 57 kg

DRUGS (7)
  1. UREPEARL [Concomitant]
     Dosage: UNK
     Route: 061
     Dates: start: 20100225
  2. SORAFENIB [Suspect]
     Dosage: 400 MG, QD
     Route: 048
     Dates: start: 20100318, end: 20100414
  3. SORAFENIB [Suspect]
     Indication: HEPATIC NEOPLASM MALIGNANT
     Dosage: 800 MG, QD
     Route: 048
     Dates: start: 20100226, end: 20100317
  4. LANSOPRAZOLE [Concomitant]
     Dosage: DAILY DOSE 30 MG
     Route: 048
     Dates: start: 20070101
  5. SORAFENIB [Suspect]
     Dosage: 800 MG, QD
     Route: 048
     Dates: start: 20100528, end: 20110110
  6. MUCOSTA [Concomitant]
     Dosage: DAILY DOSE 300 MG
     Route: 048
     Dates: start: 20070101
  7. BARACLUDE [Concomitant]
     Dosage: DAILY DOSE .5 MG
     Route: 048
     Dates: start: 20070101

REACTIONS (6)
  - PYREXIA [None]
  - HEPATIC ENCEPHALOPATHY [None]
  - HEPATIC NECROSIS [None]
  - HYPERTENSION [None]
  - FATIGUE [None]
  - DIARRHOEA [None]
